FAERS Safety Report 4847935-3 (Version None)
Quarter: 2005Q4

REPORT INFORMATION
  Report Type: 
  Country: None (occurrence: None)
  Receive Date: 20051207
  Receipt Date: 20051207
  Transmission Date: 20060501
  Serious: Yes (Other)
  Sender: FDA-Public Use
  Company Number: None

PATIENT
  Sex: Female
  Weight: 51.7101 kg

DRUGS (1)
  1. KLONOPIN   2.5 MGS [Suspect]
     Indication: ANXIETY
     Dosage: 2.5 MGS   ONCE A DAY

REACTIONS (7)
  - COGNITIVE DISORDER [None]
  - DRUG PRESCRIBING ERROR [None]
  - DRUG TOXICITY [None]
  - DRUG WITHDRAWAL SYNDROME [None]
  - EMOTIONAL DISORDER [None]
  - IMMUNE SYSTEM DISORDER [None]
  - NERVOUS SYSTEM DISORDER [None]
